FAERS Safety Report 5593106-5 (Version None)
Quarter: 2008Q1

REPORT INFORMATION
  Report Type: 
  Country: None (occurrence: None)
  Receive Date: 20080114
  Receipt Date: 20080114
  Transmission Date: 20080703
  Serious: Yes (Hospitalization)
  Sender: FDA-Public Use
  Company Number: None

PATIENT
  Sex: Male
  Weight: 80 kg

DRUGS (4)
  1. BEVACIZUMAB Q 3 WEEKS [Suspect]
     Indication: METASTATIC GASTRIC CANCER
     Dosage: 10MG/M2 IV BOLUS
     Route: 040
     Dates: start: 20070612, end: 20071204
  2. DOCETAXEL [Suspect]
     Indication: METASTATIC GASTRIC CANCER
     Dosage: 30MG/M2 IV BOLUS
     Route: 040
     Dates: start: 20070612, end: 20071211
  3. CISPLATIN [Suspect]
     Indication: METASTATIC GASTRIC CANCER
     Dosage: 25MG/M2 IV BOLUS
     Route: 040
     Dates: start: 20070612, end: 20071211
  4. IRINOTECAN D1, D8 OF 21D CYCLES [Suspect]
     Indication: METASTATIC GASTRIC CANCER
     Dosage: 50MG/M2 IV BOLUS
     Route: 040
     Dates: start: 20070612, end: 20071211

REACTIONS (5)
  - ABDOMINAL DISCOMFORT [None]
  - ABDOMINAL DISTENSION [None]
  - ANAEMIA [None]
  - GASTROINTESTINAL HAEMORRHAGE [None]
  - VOMITING [None]
